FAERS Safety Report 25399438 (Version 1)
Quarter: 2025Q2

REPORT INFORMATION
  Report Type: Spontaneous
  Country: IT (occurrence: IT)
  Receive Date: 20250605
  Receipt Date: 20250605
  Transmission Date: 20250716
  Serious: Yes (Other)
  Sender: Norvium Bioscience
  Company Number: IT-Norvium Bioscience LLC-080207

PATIENT
  Age: 18 Year
  Sex: Female

DRUGS (1)
  1. LITHIUM CARBONATE [Suspect]
     Active Substance: LITHIUM CARBONATE
     Indication: Bipolar disorder

REACTIONS (1)
  - Scleroderma-like reaction [Unknown]
